FAERS Safety Report 9468163 (Version 1)
Quarter: 2013Q3

REPORT INFORMATION
  Report Type: Spontaneous
  Country: US (occurrence: US)
  Receive Date: 20130821
  Receipt Date: 20130821
  Transmission Date: 20140515
  Serious: No
  Sender: FDA-Public Use
  Company Number: US-BRACCO-009462

PATIENT
  Age: 66 Year
  Sex: Female

DRUGS (2)
  1. CHOLETEC [Concomitant]
     Dosage: ADMINISTERED AS PART OF THE HIDA SCAN
     Dates: start: 20130322, end: 20130322
  2. KINEVAC [Suspect]
     Indication: HEPATOBILIARY SCAN
     Route: 042
     Dates: start: 20130322, end: 20130322

REACTIONS (1)
  - Pain [Recovered/Resolved]
